FAERS Safety Report 7641135-X (Version None)
Quarter: 2011Q3

REPORT INFORMATION
  Report Type: 
  Country: None (occurrence: None)
  Receive Date: 20110728
  Receipt Date: 20110718
  Transmission Date: 20111222
  Serious: Yes (Hospitalization)
  Sender: FDA-Public Use
  Company Number: NL-JNJFOC-20110704514

PATIENT
  Sex: Female

DRUGS (4)
  1. GALANTAMINE HYDROBROMIDE [Suspect]
     Indication: DEMENTIA ALZHEIMER'S TYPE
     Route: 065
     Dates: start: 20110414, end: 20110415
  2. CHLOORTALIDON [Concomitant]
     Indication: PRODUCT USED FOR UNKNOWN INDICATION
     Route: 065
     Dates: start: 20080101
  3. CALCIUM CARBONATE [Concomitant]
     Indication: PRODUCT USED FOR UNKNOWN INDICATION
     Dosage: 500 MG/800 IU
     Route: 065
     Dates: start: 20080101
  4. GALANTAMINE HYDROBROMIDE [Suspect]
     Dosage: 4 WEEKS
     Route: 065

REACTIONS (6)
  - ABDOMINAL PAIN LOWER [None]
  - MEMORY IMPAIRMENT [None]
  - MUSCLE SPASMS [None]
  - DYSSTASIA [None]
  - MALAISE [None]
  - HEADACHE [None]
